FAERS Safety Report 25593672 (Version 2)
Quarter: 2025Q3

REPORT INFORMATION
  Report Type: Spontaneous
  Country: JP (occurrence: JP)
  Receive Date: 20250722
  Receipt Date: 20250829
  Transmission Date: 20251021
  Serious: No
  Sender: BRISTOL-MYERS SQUIBB COMPANY
  Company Number: JP-BRISTOL-MYERS SQUIBB COMPANY-2025-070819

PATIENT
  Age: 70 Year
  Sex: Male

DRUGS (3)
  1. SOTYKTU [Suspect]
     Active Substance: DEUCRAVACITINIB
     Indication: Psoriasis
     Route: 048
     Dates: start: 20250317, end: 20250419
  2. SOTYKTU [Suspect]
     Active Substance: DEUCRAVACITINIB
     Dosage: 6MG ONCE A DAY (ORAL) ONLY ON WEEKDAYS, INTERRUPTED ON SATURDAYS AND SUNDAYS.
     Route: 048
     Dates: start: 20250423
  3. SOTYKTU [Suspect]
     Active Substance: DEUCRAVACITINIB
     Route: 048
     Dates: start: 20250507

REACTIONS (2)
  - Pruritus [Unknown]
  - Neck pain [Recovering/Resolving]

NARRATIVE: CASE EVENT DATE: 20250331
